FAERS Safety Report 7002375-6 (Version None)
Quarter: 2010Q3

REPORT INFORMATION
  Report Type: 
  Country: None (occurrence: None)
  Receive Date: 20100920
  Receipt Date: 20100603
  Transmission Date: 20110219
  Serious: No
  Sender: FDA-Public Use
  Company Number: US-ASTRAZENECA-2009SE20078

PATIENT
  Age: 58 Year
  Sex: Female
  Weight: 84.8 kg

DRUGS (5)
  1. SEROQUEL [Suspect]
     Indication: DEPRESSION
     Route: 048
     Dates: start: 20040101
  2. TOPROL-XL [Concomitant]
  3. SIMBALTA [Concomitant]
  4. UNIVASC [Concomitant]
  5. PEXIVA [Concomitant]

REACTIONS (9)
  - ABDOMINAL DISTENSION [None]
  - ABSCESS ORAL [None]
  - AGITATION [None]
  - DRUG DEPENDENCE [None]
  - DRUG DOSE OMISSION [None]
  - DRY MOUTH [None]
  - GINGIVITIS [None]
  - TOOTH LOSS [None]
  - WEIGHT INCREASED [None]
